FAERS Safety Report 7877025-7 (Version None)
Quarter: 2011Q4

REPORT INFORMATION
  Report Type: 
  Country: None (occurrence: None)
  Receive Date: 20111031
  Receipt Date: 20110810
  Transmission Date: 20120403
  Serious: No
  Sender: FDA-Public Use
  Company Number: US-ABBOTT-11P-163-0845723-00

PATIENT
  Sex: Male
  Weight: 95.34 kg

DRUGS (4)
  1. NOVALOG [Concomitant]
     Indication: DIABETES MELLITUS
  2. CREON [Suspect]
     Indication: DEBRIDEMENT
     Dosage: 2 WITH EACH MEAL
     Dates: start: 20100125
  3. DIOVAN [Concomitant]
     Indication: HYPERTENSION
  4. LANTUS [Concomitant]
     Indication: DIABETES MELLITUS

REACTIONS (2)
  - ABDOMINAL PAIN [None]
  - DRUG INEFFECTIVE [None]
